FAERS Safety Report 8731346 (Version 4)
Quarter: 2013Q1

REPORT INFORMATION
  Report Type: Spontaneous
  Country: US (occurrence: US)
  Receive Date: 20120820
  Receipt Date: 20130225
  Transmission Date: 20140127
  Serious: Yes (Other)
  Sender: FDA-Public Use
  Company Number: US-JNJFOC-20120806507

PATIENT
  Age: 19 None
  Sex: Female
  Weight: 58.97 kg

DRUGS (26)
  1. REMICADE [Suspect]
     Indication: RHEUMATOID ARTHRITIS
     Dosage: 8 INFUSION SO FAR
     Route: 042
     Dates: start: 20120725
  2. REMICADE [Suspect]
     Indication: RHEUMATOID ARTHRITIS
     Dosage: 8 INFUSIONS TILL DATE
     Route: 042
     Dates: end: 2008
  3. REMICADE [Suspect]
     Indication: RHEUMATOID ARTHRITIS
     Route: 042
     Dates: start: 2010, end: 2010
  4. REMICADE [Suspect]
     Indication: RHEUMATOID ARTHRITIS
     Dosage: 4 INFUSION SO FAR
     Route: 042
     Dates: start: 20120808
  5. REMICADE [Suspect]
     Indication: RHEUMATOID ARTHRITIS
     Route: 042
     Dates: start: 20120827
  6. REMICADE [Suspect]
     Indication: CROHN^S DISEASE
     Dosage: 8 INFUSION SO FAR
     Route: 042
     Dates: start: 20120725
  7. REMICADE [Suspect]
     Indication: CROHN^S DISEASE
     Dosage: 4 INFUSION SO FAR
     Route: 042
     Dates: start: 20120808
  8. REMICADE [Suspect]
     Indication: CROHN^S DISEASE
     Route: 042
     Dates: start: 20120827
  9. REMICADE [Suspect]
     Indication: CROHN^S DISEASE
     Dosage: 8 INFUSIONS TILL DATE
     Route: 042
     Dates: end: 2008
  10. REMICADE [Suspect]
     Indication: CROHN^S DISEASE
     Route: 042
     Dates: start: 2010, end: 2010
  11. REMICADE [Suspect]
     Indication: ARTHRITIS
     Dosage: 8 INFUSION SO FAR
     Route: 042
     Dates: start: 20120725
  12. REMICADE [Suspect]
     Indication: ARTHRITIS
     Dosage: 4 INFUSION SO FAR
     Route: 042
     Dates: start: 20120808
  13. REMICADE [Suspect]
     Indication: ARTHRITIS
     Route: 042
     Dates: start: 20120827
  14. REMICADE [Suspect]
     Indication: ARTHRITIS
     Dosage: 8 INFUSIONS TILL DATE
     Route: 042
     Dates: end: 2008
  15. REMICADE [Suspect]
     Indication: ARTHRITIS
     Route: 042
     Dates: start: 2010, end: 2010
  16. ACCOLATE [Concomitant]
     Indication: HYPERSENSITIVITY
     Route: 048
     Dates: start: 20120718
  17. ACCOLATE [Concomitant]
     Indication: HYPERSENSITIVITY
     Route: 048
     Dates: start: 201207
  18. ACCOLATE [Concomitant]
     Indication: RHEUMATOID ARTHRITIS
     Route: 048
     Dates: start: 201207
  19. ACCOLATE [Concomitant]
     Indication: RHEUMATOID ARTHRITIS
     Route: 048
     Dates: start: 20120718
  20. ACCOLATE [Concomitant]
     Indication: PREMEDICATION
     Route: 048
     Dates: start: 20120718
  21. ACCOLATE [Concomitant]
     Indication: PREMEDICATION
     Route: 048
     Dates: start: 201207
  22. METHOTREXATE [Concomitant]
     Indication: RHEUMATOID ARTHRITIS
     Route: 065
  23. METHOTREXATE [Concomitant]
     Indication: RHEUMATOID ARTHRITIS
     Route: 065
  24. MOBIC [Concomitant]
     Indication: RHEUMATOID ARTHRITIS
     Route: 065
  25. FOLIC ACID [Concomitant]
     Indication: RHEUMATOID ARTHRITIS
     Route: 065
  26. PREDNISONE [Concomitant]
     Indication: RHEUMATOID ARTHRITIS
     Route: 065
     Dates: start: 201205

REACTIONS (8)
  - Crohn^s disease [Unknown]
  - Infusion related reaction [Recovered/Resolved]
  - Dyspnoea [Recovered/Resolved]
  - Chromaturia [Recovered/Resolved]
  - Red blood cells urine [Not Recovered/Not Resolved]
  - Hypotension [Unknown]
  - Haematuria [Recovered/Resolved]
  - Back pain [Not Recovered/Not Resolved]
